FAERS Safety Report 5151145-2 (Version None)
Quarter: 2006Q4

REPORT INFORMATION
  Report Type: 
  Country: None (occurrence: None)
  Receive Date: 20061113
  Receipt Date: 20061113
  Transmission Date: 20070319
  Serious: Yes (Hospitalization)
  Sender: FDA-Public Use
  Company Number: None

PATIENT
  Age: 56 Year
  Sex: Male
  Weight: 89.9 kg

DRUGS (10)
  1. PERCOCET [Suspect]
     Indication: PAIN
     Dosage: #4 ONCE PO
     Route: 048
  2. ALPRAZOLAM [Suspect]
     Indication: ANXIETY
     Dosage: 1-2MG  HS  PO
     Route: 048
  3. ALPRAZOLAM [Suspect]
     Indication: INSOMNIA
     Dosage: 1-2MG  HS  PO
     Route: 048
  4. ARIPIPRAZOLE [Concomitant]
  5. ATENOLOL [Concomitant]
  6. CYANOCOBALAMIN [Concomitant]
  7. DIPHENHYDRAMINE HCL [Concomitant]
  8. HYALURONATE SODIUM [Concomitant]
  9. OMEPRAZOLE [Concomitant]
  10. OXYCODONE/ACETAMINOPHEN [Concomitant]

REACTIONS (3)
  - FALL [None]
  - LOSS OF CONSCIOUSNESS [None]
  - SYNCOPE VASOVAGAL [None]
